FAERS Safety Report 5383831-3 (Version None)
Quarter: 2007Q3

REPORT INFORMATION
  Report Type: 
  Country: None (occurrence: None)
  Receive Date: 20070702
  Receipt Date: 20070529
  Transmission Date: 20080115
  Serious: No
  Sender: FDA-Public Use
  Company Number: 2007PV032972

PATIENT
  Age: 67 Year
  Sex: Female
  Weight: 92.0802 kg

DRUGS (6)
  1. SYMLIN [Suspect]
     Indication: TYPE 2 DIABETES MELLITUS
     Dosage: 60 MCG;TID;SC /  30 MCG;TID;SC /  15 MCG;TID;SC
     Route: 058
     Dates: start: 20070101, end: 20070201
  2. SYMLIN [Suspect]
     Indication: TYPE 2 DIABETES MELLITUS
     Dosage: 60 MCG;TID;SC /  30 MCG;TID;SC /  15 MCG;TID;SC
     Route: 058
     Dates: start: 20070201, end: 20070201
  3. SYMLIN [Suspect]
     Indication: TYPE 2 DIABETES MELLITUS
     Dosage: 60 MCG;TID;SC /  30 MCG;TID;SC /  15 MCG;TID;SC
     Route: 058
     Dates: start: 20070201
  4. NOVOLIN 70/30 [Concomitant]
  5. HUMULIN 50/50 [Concomitant]
  6. HUMULIN R [Concomitant]

REACTIONS (2)
  - DYSGEUSIA [None]
  - INJECTION SITE PAIN [None]
